FAERS Safety Report 9907018 (Version 3)
Quarter: 2014Q1

REPORT INFORMATION
  Report Type: Report from Study
  Country: CN (occurrence: CN)
  Receive Date: 20140218
  Receipt Date: 20140305
  Transmission Date: 20141002
  Serious: Yes (Death)
  Sender: FDA-Public Use
  Company Number: CN-EISAI INC-E7389-04761-CLI-CN

PATIENT
  Age: 41 Year
  Sex: Female
  Weight: 54 kg

DRUGS (1)
  1. ERIBULIN [Suspect]
     Indication: BREAST CANCER
     Dosage: 2.18 MG
     Route: 041
     Dates: start: 20140212, end: 20140212

REACTIONS (1)
  - Capillary leak syndrome [Fatal]
